FAERS Safety Report 21135839 (Version 1)
Quarter: 2022Q3

REPORT INFORMATION
  Report Type: Spontaneous
  Country: IT (occurrence: IT)
  Receive Date: 20220727
  Receipt Date: 20220727
  Transmission Date: 20221027
  Serious: Yes (Other)
  Sender: FDA-Public Use
  Company Number: IT-MINISAL02-874582

PATIENT
  Age: 66 Year
  Sex: Female

DRUGS (3)
  1. DOCETAXEL [Suspect]
     Active Substance: DOCETAXEL
     Indication: Breast cancer
     Dosage: 105 MILLIGRAM
     Route: 065
     Dates: start: 20220622, end: 20220622
  2. ONTRUZANT [Concomitant]
     Active Substance: TRASTUZUMAB-DTTB
     Indication: Breast cancer
     Dosage: 480 MILLIGRAM
     Route: 065
     Dates: start: 20220622
  3. PERJETA [Concomitant]
     Active Substance: PERTUZUMAB
     Indication: Breast cancer
     Dosage: 420 MILLIGRAM
     Route: 065
     Dates: start: 20220622, end: 20220622

REACTIONS (4)
  - Throat tightness [Recovered/Resolved]
  - Vomiting [Recovered/Resolved]
  - Cough [Recovered/Resolved]
  - Malaise [Recovered/Resolved]

NARRATIVE: CASE EVENT DATE: 20220622
